FAERS Safety Report 22837464 (Version 2)
Quarter: 2023Q4

REPORT INFORMATION
  Report Type: Spontaneous
  Country: US (occurrence: US)
  Receive Date: 20230818
  Receipt Date: 20231116
  Transmission Date: 20240110
  Serious: No
  Sender: FDA-Public Use
  Company Number: US-BRISTOL-MYERS SQUIBB COMPANY-2023-116139

PATIENT
  Age: 74 Year
  Sex: Male

DRUGS (3)
  1. OPDIVO [Suspect]
     Active Substance: NIVOLUMAB
     Indication: Nasopharyngeal cancer
     Dosage: DOSE : OPDIVO 360MG   FREQ : OPDIVO EVERY 21 DAYS?STRENGTH AND PRESENTATION OF THE AE : OPDIVO 240MG
     Route: 042
     Dates: start: 20230329
  2. YERVOY [Suspect]
     Active Substance: IPILIMUMAB
     Indication: Nasopharyngeal cancer
     Dosage: DOSE : YERVOY 72MG?FREQ -YERVOY EVERY 42 DAYS?STRENGTH AND PRESENTATION OF THE AE : YERVOY 50MGX2 VI
     Route: 042
     Dates: start: 20230329
  3. LENVIMA [Concomitant]
     Active Substance: LENVATINIB
     Indication: Product used for unknown indication

REACTIONS (2)
  - Drug intolerance [Unknown]
  - Off label use [Unknown]

NARRATIVE: CASE EVENT DATE: 20230712
